FAERS Safety Report 24893997 (Version 1)
Quarter: 2025Q1

REPORT INFORMATION
  Report Type: Report from Study
  Country: CA (occurrence: CA)
  Receive Date: 20250128
  Receipt Date: 20250128
  Transmission Date: 20250408
  Serious: Yes (Other)
  Sender: TAKEDA
  Company Number: CA-TAKEDA-2025TUS007390

PATIENT
  Sex: Male

DRUGS (8)
  1. VEDOLIZUMAB [Suspect]
     Active Substance: VEDOLIZUMAB
     Indication: Colitis ulcerative
  2. VEDOLIZUMAB [Suspect]
     Active Substance: VEDOLIZUMAB
     Indication: Colitis ulcerative
     Dosage: 108 MILLIGRAM, Q2WEEKS
     Dates: start: 20240322
  3. ROSUVASTATIN [Concomitant]
     Active Substance: ROSUVASTATIN
  4. CHOLECALCIFEROL [Concomitant]
     Active Substance: CHOLECALCIFEROL
  5. AMLODIPINE [Concomitant]
     Active Substance: AMLODIPINE BESYLATE
  6. TRANDOLAPRIL [Concomitant]
     Active Substance: TRANDOLAPRIL
  7. DUTASTERIDE [Concomitant]
     Active Substance: DUTASTERIDE
  8. TAMSULOSIN [Concomitant]
     Active Substance: TAMSULOSIN

REACTIONS (1)
  - Rectal haemorrhage [Recovered/Resolved]
